FAERS Safety Report 7587705 (Version 2)
Quarter: 2013Q3

REPORT INFORMATION
  Report Type: Spontaneous
  Country: US (occurrence: US)
  Receive Date: 20100915
  Receipt Date: 20130830
  Transmission Date: 20140515
  Serious: Yes (Death, Other)
  Sender: FDA-Public Use
  Company Number: US-CELGENEUS-163-50794-10091159

PATIENT
  Sex: 0

DRUGS (6)
  1. VIDAZA [Suspect]
     Indication: ACUTE MYELOID LEUKAEMIA
     Dosage: 75 MILLIGRAM/SQ. METER
     Route: 041
  2. BORTEZOMIB [Suspect]
     Indication: ACUTE MYELOID LEUKAEMIA
     Route: 041
  3. BORTEZOMIB [Suspect]
     Route: 041
  4. BORTEZOMIB [Suspect]
     Route: 041
  5. BORTEZOMIB [Suspect]
     Route: 041
  6. HYDROXYUREA [Concomitant]
     Indication: WHITE BLOOD CELL DISORDER
     Route: 065

REACTIONS (28)
  - Pneumonia [Fatal]
  - Sepsis [Fatal]
  - Acute myeloid leukaemia [Fatal]
  - Ventricular arrhythmia [Fatal]
  - Infection [Unknown]
  - Febrile neutropenia [Unknown]
  - Peripheral sensory neuropathy [Unknown]
  - Fatigue [Unknown]
  - Hyperglycaemia [Unknown]
  - Acidosis [Unknown]
  - Blood albumin decreased [Unknown]
  - Tumour lysis syndrome [Unknown]
  - Acute respiratory distress syndrome [Unknown]
  - Bronchospasm [Unknown]
  - Lung infiltration [Unknown]
  - Dyspnoea [Unknown]
  - Respiratory disorder [Unknown]
  - Troponin I increased [Unknown]
  - Atrial fibrillation [Unknown]
  - Hypotension [Unknown]
  - Pain in extremity [Unknown]
  - Renal failure [Unknown]
  - Aspartate aminotransferase increased [Unknown]
  - Alanine aminotransferase increased [Unknown]
  - Haemorrhage [Unknown]
  - Thrombosis [Unknown]
  - International normalised ratio increased [Unknown]
  - Thrombocytopenia [Unknown]
